FAERS Safety Report 13462429 (Version 2)
Quarter: 2017Q2

REPORT INFORMATION
  Report Type: Spontaneous
  Country: JP (occurrence: JP)
  Receive Date: 20170420
  Receipt Date: 20170426
  Transmission Date: 20170830
  Serious: Yes (Hospitalization, Other)
  Sender: FDA-Public Use
  Company Number: JP-PFIZER INC-2017068133

PATIENT
  Age: 18 Year
  Sex: Male
  Weight: 105.4 kg

DRUGS (12)
  1. ZITHROMAC 250MG [Suspect]
     Active Substance: AZITHROMYCIN DIHYDRATE
     Indication: COUGH
  2. UNASYN [Suspect]
     Active Substance: AMPICILLIN SODIUM\SULBACTAM SODIUM
     Indication: PYREXIA
     Dosage: 1.5 G, 4X/DAY
     Route: 042
     Dates: start: 20170202, end: 20170207
  3. UNASYN [Suspect]
     Active Substance: AMPICILLIN SODIUM\SULBACTAM SODIUM
     Indication: COUGH
  4. GRACEVIT [Suspect]
     Active Substance: SITAFLOXACIN
     Indication: COUGH
     Dosage: 200 MG, DAILY
     Route: 048
     Dates: start: 20170131, end: 20170202
  5. MEROPEN [Suspect]
     Active Substance: MEROPENEM
     Indication: PYREXIA
     Dosage: 4 G, DAILY
     Route: 042
     Dates: start: 20170208, end: 20170209
  6. MEROPEN [Suspect]
     Active Substance: MEROPENEM
     Indication: COUGH
  7. MINOMYCIN 100MG [Suspect]
     Active Substance: MINOCYCLINE HYDROCHLORIDE
     Indication: PYREXIA
     Dosage: 100 MG, 2X/DAY
     Route: 042
     Dates: start: 20170202, end: 20170207
  8. MINOMYCIN 100MG [Suspect]
     Active Substance: MINOCYCLINE HYDROCHLORIDE
     Indication: COUGH
  9. SWORD [Suspect]
     Active Substance: PRULIFLOXACIN
     Indication: COUGH
  10. ZITHROMAC 250MG [Suspect]
     Active Substance: AZITHROMYCIN DIHYDRATE
     Indication: PYREXIA
     Dosage: 500 MG, 1X/DAY
     Route: 048
     Dates: start: 20170128, end: 20170130
  11. GRACEVIT [Suspect]
     Active Substance: SITAFLOXACIN
     Indication: PYREXIA
  12. SWORD [Suspect]
     Active Substance: PRULIFLOXACIN
     Indication: PYREXIA
     Dosage: UNK
     Route: 048
     Dates: start: 20170125, end: 20170127

REACTIONS (3)
  - Product use issue [Unknown]
  - Tubulointerstitial nephritis and uveitis syndrome [Unknown]
  - Tubulointerstitial nephritis [Unknown]

NARRATIVE: CASE EVENT DATE: 20170128
